FAERS Safety Report 5090083-0 (Version None)
Quarter: 2006Q3

REPORT INFORMATION
  Report Type: 
  Country: None (occurrence: None)
  Receive Date: 20060828
  Receipt Date: 20060109
  Transmission Date: 20061208
  Serious: No
  Sender: FDA-Public Use
  Company Number: US-GLAXOSMITHKLINE-A0588386A

PATIENT
  Age: 63 Year
  Sex: Female

DRUGS (3)
  1. BUPROPION HCL [Suspect]
     Indication: DEPRESSION
     Dosage: 100MG PER DAY
     Route: 048
     Dates: start: 20050801, end: 20051213
  2. WELLBUTRIN XL [Suspect]
     Indication: DEPRESSION
     Route: 048
     Dates: start: 20060112
  3. DESYREL [Concomitant]

REACTIONS (8)
  - CRYING [None]
  - DRUG INEFFECTIVE [None]
  - ENERGY INCREASED [None]
  - FEELING ABNORMAL [None]
  - INITIAL INSOMNIA [None]
  - INSOMNIA [None]
  - MENTAL IMPAIRMENT [None]
  - NIGHTMARE [None]
